FAERS Safety Report 21362563 (Version 1)
Quarter: 2022Q3

REPORT INFORMATION
  Report Type: Report from Study
  Country: US (occurrence: US)
  Receive Date: 20220922
  Receipt Date: 20220922
  Transmission Date: 20221027
  Serious: Yes (Hospitalization)
  Sender: FDA-Public Use
  Company Number: US-ABBVIE-4128442

PATIENT
  Sex: Male

DRUGS (4)
  1. IMBRUVICA [Suspect]
     Active Substance: IBRUTINIB
     Indication: Chronic lymphocytic leukaemia
     Route: 048
     Dates: start: 20220823, end: 20220831
  2. COUMADIN [Concomitant]
     Active Substance: WARFARIN SODIUM
     Indication: Product used for unknown indication
  3. Rituxan infusions [Concomitant]
     Indication: Chronic lymphocytic leukaemia
  4. Moderna covind-19  vaccine [Concomitant]
     Indication: COVID-19 immunisation

REACTIONS (5)
  - Chills [Recovering/Resolving]
  - Atrial fibrillation [Unknown]
  - Pyrexia [Recovering/Resolving]
  - Confusional state [Recovering/Resolving]
  - Thrombocytopenia [Unknown]

NARRATIVE: CASE EVENT DATE: 20220101
